FAERS Safety Report 8056235-2 (Version None)
Quarter: 2012Q1

REPORT INFORMATION
  Report Type: 
  Country: None (occurrence: None)
  Receive Date: 20120119
  Receipt Date: 20120111
  Transmission Date: 20120608
  Serious: Yes (Other)
  Sender: FDA-Public Use
  Company Number: PHHY2012US002982

PATIENT
  Age: 58 Year
  Sex: Male

DRUGS (10)
  1. IPRATROPIUM BROMIDE [Concomitant]
     Dosage: 0.02 %, UNK
  2. CYANOCOBALAMIN [Concomitant]
     Dosage: 1000 UG, UNK
  3. TERAZOSIN HCL [Concomitant]
     Dosage: 2 MG, UNK
     Route: 048
  4. FORMOTEROL FUMARATE [Concomitant]
     Dosage: 12 UG, BID
  5. MONTELUKAST [Concomitant]
     Dosage: 10 MG, UNK
     Route: 048
  6. PREDNISONE TAB [Suspect]
     Dosage: 20 MG, UNK
  7. GABAPENTIN [Concomitant]
     Dosage: 300 MG, TID
  8. MOMETASONE FUROATE [Concomitant]
     Dosage: 220 UG, UNK
  9. OMEPRAZOLE [Concomitant]
     Dosage: 20 MG, UNK
     Route: 048
  10. ALBUTEROL [Concomitant]
     Dosage: 0.083 %, UNK

REACTIONS (13)
  - TACHYCARDIA [None]
  - VISION BLURRED [None]
  - DEREALISATION [None]
  - BLOOD PRESSURE INCREASED [None]
  - DYSPNOEA [None]
  - AGITATION [None]
  - HYPERHIDROSIS [None]
  - CHEST DISCOMFORT [None]
  - NAUSEA [None]
  - PALPITATIONS [None]
  - PANIC ATTACK [None]
  - RESTLESSNESS [None]
  - ANXIETY [None]
